FAERS Safety Report 4634225-7 (Version None)
Quarter: 2005Q2

REPORT INFORMATION
  Report Type: 
  Country: None (occurrence: None)
  Receive Date: 20050325
  Receipt Date: 20050111
  Transmission Date: 20051028
  Serious: No
  Sender: FDA-Public Use
  Company Number: USA030435065

PATIENT
  Age: 65 Year
  Sex: Female
  Weight: 43 kg

DRUGS (5)
  1. FORTEO [Suspect]
     Dates: start: 20030101
  2. CALCIUM GLUCONATE [Concomitant]
  3. METHOTREXATE [Concomitant]
  4. MULTI-VITAMIN [Concomitant]
  5. PREDNISONE [Concomitant]

REACTIONS (3)
  - BONE PAIN [None]
  - FEELING ABNORMAL [None]
  - MUSCLE SPASMS [None]
